FAERS Safety Report 23882994 (Version 1)
Quarter: 2024Q2

REPORT INFORMATION
  Report Type: Spontaneous
  Country: US (occurrence: US)
  Receive Date: 20240522
  Receipt Date: 20240522
  Transmission Date: 20240716
  Serious: No
  Sender: FDA-Public Use
  Company Number: US-MTPC-MTDA2024-0009385

PATIENT

DRUGS (2)
  1. RADICAVA ORS [Suspect]
     Active Substance: EDARAVONE
     Indication: Product used for unknown indication
     Dosage: 5 MILLILITER, QD 10 DAYS, OFF 18 DAYS
     Route: 065
  2. RADICAVA ORS [Suspect]
     Active Substance: EDARAVONE
     Indication: Product used for unknown indication
     Dosage: 5 MILLILITER, QD 10 DAYS, OFF 18 DAYS
     Route: 065

REACTIONS (1)
  - Incorrect dose administered [Unknown]
